FAERS Safety Report 15065367 (Version 1)
Quarter: 2018Q2

REPORT INFORMATION
  Report Type: Spontaneous
  Country: FR (occurrence: FR)
  Receive Date: 20180626
  Receipt Date: 20180626
  Transmission Date: 20180711
  Serious: Yes (Hospitalization)
  Sender: FDA-Public Use
  Company Number: FR-ASTRAZENECA-2018SE79391

PATIENT
  Age: 54 Year
  Sex: Male
  Weight: 80 kg

DRUGS (7)
  1. TEMESTA (LORAZEPAM) [Concomitant]
     Active Substance: LORAZEPAM
     Dosage: 1.0MG UNKNOWN
  2. IMOVANE [Concomitant]
     Active Substance: ZOPICLONE
     Route: 048
  3. MIRTAZAPINE. [Suspect]
     Active Substance: MIRTAZAPINE
     Indication: SUICIDE ATTEMPT
     Dosage: 100.0MG UNKNOWN
     Route: 048
     Dates: start: 20180428, end: 20180428
  4. THERALENE [Suspect]
     Active Substance: TRIMEPRAZINE
     Indication: SUICIDE ATTEMPT
     Dosage: 125.0MG ONCE/SINGLE ADMINISTRATION
     Route: 048
     Dates: start: 20180428, end: 20180428
  5. QUETIAPINE FUMARATE. [Suspect]
     Active Substance: QUETIAPINE FUMARATE
     Indication: SUICIDE ATTEMPT
     Dosage: 300.0MG ONCE/SINGLE ADMINISTRATION
     Route: 048
     Dates: start: 20180428, end: 20180428
  6. DEPAMIDE [Suspect]
     Active Substance: VALPROMIDE
     Indication: SUICIDE ATTEMPT
     Dosage: 10.0DF UNKNOWN
     Route: 048
     Dates: start: 20180428, end: 20180428
  7. SULFARLEM [Concomitant]
     Active Substance: ANETHOLTRITHION

REACTIONS (3)
  - Sinus tachycardia [Recovered/Resolved]
  - Extrapyramidal disorder [Recovered/Resolved]
  - Disturbance in attention [Recovered/Resolved]

NARRATIVE: CASE EVENT DATE: 20180428
